FAERS Safety Report 23863199 (Version 1)
Quarter: 2024Q2

REPORT INFORMATION
  Report Type: Spontaneous
  Country: US (occurrence: None)
  Receive Date: 20240515
  Receipt Date: 20240515
  Transmission Date: 20240716
  Serious: No
  Sender: FDA-Public Use
  Company Number: None

PATIENT
  Age: 58 Year
  Sex: Female

DRUGS (1)
  1. PROMACTA [Suspect]
     Active Substance: ELTROMBOPAG OLAMINE
     Dosage: FREQUENCY : DAILY;?
     Route: 048

REACTIONS (6)
  - Pyrexia [None]
  - Chills [None]
  - Sepsis [None]
  - Hydronephrosis [None]
  - Nephrolithiasis [None]
  - Cholelithiasis [None]

NARRATIVE: CASE EVENT DATE: 20240514
